FAERS Safety Report 7135682-7 (Version None)
Quarter: 2010Q4

REPORT INFORMATION
  Report Type: 
  Country: None (occurrence: None)
  Receive Date: 20101203
  Receipt Date: 20101125
  Transmission Date: 20110411
  Serious: Yes (Hospitalization, Other)
  Sender: FDA-Public Use
  Company Number: JP-ROCHE-745762

PATIENT
  Sex: Female

DRUGS (4)
  1. AVASTIN [Suspect]
     Indication: LARGE INTESTINE CARCINOMA
     Route: 041
     Dates: start: 20100428
  2. ELPLAT [Concomitant]
     Dosage: NOTE: DOSAGE WAS UNCERTAIN.
     Route: 041
  3. LEVOFOLINATE [Concomitant]
     Dosage: NOTE: DOSAGE WAS UNCERTAIN.
     Route: 041
  4. FLUOROURACIL [Concomitant]
     Dosage: NOTE: DOSAGE WAS UNCERTAIN.
     Route: 041

REACTIONS (2)
  - HAEMATEMESIS [None]
  - VARICOSE VEIN RUPTURED [None]
